FAERS Safety Report 18524089 (Version 1)
Quarter: 2020Q4

REPORT INFORMATION
  Report Type: Spontaneous
  Country: US (occurrence: US)
  Receive Date: 20201119
  Receipt Date: 20201119
  Transmission Date: 20210114
  Serious: Yes (Disabling, Other)
  Sender: FDA-Public Use
  Company Number: US-PURDUE-USA-2020-0177317

PATIENT
  Sex: Female

DRUGS (4)
  1. OXYCODONE HCL CR TABLETS (SIMILAR TO NDA 22-272) [Suspect]
     Active Substance: OXYCODONE HYDROCHLORIDE
     Indication: PAIN
     Dosage: UNK
     Route: 048
  2. OXYCODONE HCL TABLETS (RHODES 91-490) [Suspect]
     Active Substance: OXYCODONE HYDROCHLORIDE
     Indication: PAIN
     Dosage: UNK
     Route: 048
  3. OXYCONTIN [Suspect]
     Active Substance: OXYCODONE HYDROCHLORIDE
     Indication: PAIN
     Dosage: UNK
     Route: 048
  4. OXYCODONE/ ACETAMINOPHEN TABLETS [Suspect]
     Active Substance: ACETAMINOPHEN\OXYCODONE HYDROCHLORIDE
     Indication: PAIN
     Dosage: UNK
     Route: 048

REACTIONS (13)
  - Liver disorder [Unknown]
  - Anxiety [Unknown]
  - Panic attack [Unknown]
  - Drug dependence [Unknown]
  - Cerebrovascular accident [Unknown]
  - Disability [Unknown]
  - Depression [Unknown]
  - Overdose [Unknown]
  - Bipolar I disorder [Unknown]
  - Condition aggravated [Unknown]
  - Gastric disorder [Unknown]
  - Unevaluable event [Unknown]
  - Insomnia [Unknown]
